FAERS Safety Report 23701274 (Version 1)
Quarter: 2024Q2

REPORT INFORMATION
  Report Type: Spontaneous
  Country: JP (occurrence: JP)
  Receive Date: 20240403
  Receipt Date: 20240403
  Transmission Date: 20240716
  Serious: Yes (Death, Other)
  Sender: FDA-Public Use
  Company Number: JP-002147023-NVSJ2024JP004022

PATIENT
  Age: 75 Year
  Sex: Female

DRUGS (2)
  1. TAFINLAR [Suspect]
     Active Substance: DABRAFENIB MESYLATE
     Indication: Anaplastic thyroid cancer
     Dosage: UNK
     Route: 048
  2. MEKINIST [Suspect]
     Active Substance: TRAMETINIB DIMETHYL SULFOXIDE
     Indication: Anaplastic thyroid cancer
     Dosage: UNK
     Route: 048

REACTIONS (5)
  - Death [Fatal]
  - Metastases to lung [Unknown]
  - Metastases to lymph nodes [Unknown]
  - Malignant neoplasm progression [Unknown]
  - Metastases to central nervous system [Unknown]
